FAERS Safety Report 8552773 (Version 2)
Quarter: 2013Q1

REPORT INFORMATION
  Report Type: Report from Study
  Country: US (occurrence: US)
  Receive Date: 20120508
  Receipt Date: 20130306
  Transmission Date: 20140127
  Serious: Yes (Hospitalization)
  Sender: FDA-Public Use
  Company Number: US-ROCHE-1060087

PATIENT
  Age: 54 Year
  Sex: Female

DRUGS (20)
  1. RITUXIMAB [Suspect]
     Indication: RHEUMATOID ARTHRITIS
     Dosage: LAST DOSE PRIOR TO ADVERSE EVENT 01 MAR 2012
     Route: 042
     Dates: start: 20120216
  2. METHOTREXATE [Suspect]
     Indication: RHEUMATOID ARTHRITIS
     Route: 048
     Dates: start: 201005
  3. FOLIC ACID [Concomitant]
     Indication: RHEUMATOID ARTHRITIS
     Route: 048
     Dates: start: 2005
  4. METOPROLOL SUCCINATE [Concomitant]
     Indication: HYPERTENSION
     Route: 048
     Dates: start: 2005
  5. GLIPIZIDE [Concomitant]
     Indication: TYPE 2 DIABETES MELLITUS
     Route: 048
     Dates: start: 1997
  6. ESTRADIOL [Concomitant]
     Indication: MENOPAUSE
     Route: 048
     Dates: start: 200910
  7. LISINOPRIL DIHYDRATE [Concomitant]
     Indication: HYPERTENSION
     Route: 048
     Dates: start: 198709
  8. PREDNISOLONE [Concomitant]
     Indication: RHEUMATOID ARTHRITIS
     Route: 048
     Dates: start: 2002
  9. CALCIUM CARBONATE/VITAMIN D NOS [Concomitant]
     Route: 048
     Dates: start: 20050427
  10. MULTIVITAMIN [Concomitant]
     Indication: PROPHYLAXIS
     Dosage: 1 TAB
     Route: 048
     Dates: start: 1982
  11. ATORVASTATIN CALCIUM [Concomitant]
     Indication: HYPERCHOLESTEROLAEMIA
     Route: 048
     Dates: start: 200902
  12. VITAMIN D [Concomitant]
     Indication: HYPERVITAMINOSIS
     Route: 048
     Dates: start: 2010
  13. SITAGLIPTIN [Concomitant]
     Indication: TYPE 2 DIABETES MELLITUS
     Route: 048
     Dates: start: 200912
  14. ADALIMUMAB [Concomitant]
     Indication: RHEUMATOID ARTHRITIS
     Route: 058
     Dates: start: 201101
  15. TRAMADOL HCL [Concomitant]
     Indication: RHEUMATOID ARTHRITIS
     Dosage: PRN , 2-3 WK
     Route: 048
     Dates: start: 201109
  16. ACETYLSALICYLIC ACID [Concomitant]
     Route: 048
     Dates: start: 2010
  17. BUMETANIDE [Concomitant]
     Route: 048
     Dates: start: 201012
  18. NAPROXEN [Concomitant]
     Indication: PAIN
     Dosage: BID PRN
     Route: 048
     Dates: start: 200908
  19. LANTUS SOLOSTAR [Concomitant]
     Indication: TYPE 2 DIABETES MELLITUS
     Dosage: QHS
     Route: 058
     Dates: start: 2010
  20. SERTRALINE HCL [Concomitant]
     Indication: ANXIETY
     Route: 048
     Dates: start: 201111, end: 201204

REACTIONS (1)
  - Cardiac failure congestive [Recovered/Resolved]
